FAERS Safety Report 4678616-7 (Version None)
Quarter: 2005Q2

REPORT INFORMATION
  Report Type: 
  Country: None (occurrence: None)
  Receive Date: 20050527
  Receipt Date: 20050511
  Transmission Date: 20051028
  Serious: Yes (Other)
  Sender: FDA-Public Use
  Company Number: 2005JP000948

PATIENT
  Age: 32 Year
  Sex: Male

DRUGS (1)
  1. PROGRAF [Suspect]
     Indication: RENAL TRANSPLANT
     Dosage: 4.00 MG, UNK/D, 3.00 MG, UNKNOWN/D

REACTIONS (2)
  - ENTEROCOLITIS VIRAL [None]
  - IMMUNOSUPPRESSANT DRUG LEVEL INCREASED [None]
